FAERS Safety Report 21944870 (Version 1)
Quarter: 2023Q1

REPORT INFORMATION
  Report Type: Spontaneous
  Country: HU (occurrence: HU)
  Receive Date: 20230202
  Receipt Date: 20230202
  Transmission Date: 20230418
  Serious: Yes (Hospitalization, Other)
  Sender: FDA-Public Use
  Company Number: HU-EMA-DD-20230112-5861859-123458

PATIENT
  Age: 39 Year
  Sex: Female
  Weight: 63 kg

DRUGS (12)
  1. CISPLATIN [Suspect]
     Active Substance: CISPLATIN
     Indication: Squamous cell carcinoma
     Dosage: BETWEEN MARCH AND MAY 2022 - 4 COURSES, ROUTE OF ADMINISTRATION : UNKNOWN
     Route: 065
     Dates: start: 20220324, end: 20220718
  2. PACLITAXEL [Suspect]
     Active Substance: PACLITAXEL
     Indication: Squamous cell carcinoma
     Dosage: BETWEEN MARCH AND MAY 2022 - 4 COURSES, ROUTE OF ADMINISTRATION : UNKNOWN
     Route: 065
     Dates: start: 20220324, end: 20220526
  3. TECFIDERA [Suspect]
     Active Substance: DIMETHYL FUMARATE
     Indication: Relapsing-remitting multiple sclerosis
     Route: 065
     Dates: start: 20201116, end: 20220906
  4. BEVACIZUMAB [Suspect]
     Active Substance: BEVACIZUMAB
     Indication: Squamous cell carcinoma
     Dosage: BETWEEN MARCH AND MAY 2022 - 4 COURSES, ROUTE OF ADMINISTRATION : UNKNOWN
     Route: 065
     Dates: start: 20220324, end: 20220526
  5. MAMAZOL [Concomitant]
     Indication: Product used for unknown indication
     Route: 042
  6. SODIUM CHLORIDE [Concomitant]
     Active Substance: SODIUM CHLORIDE
     Indication: Product used for unknown indication
     Route: 042
  7. SOLU-MEDROL [Concomitant]
     Active Substance: METHYLPREDNISOLONE SODIUM SUCCINATE
     Indication: Product used for unknown indication
     Route: 042
  8. FAMOTIDINE [Concomitant]
     Active Substance: FAMOTIDINE
     Indication: Product used for unknown indication
     Route: 042
  9. ONDANSETRON [Concomitant]
     Active Substance: ONDANSETRON
     Indication: Product used for unknown indication
     Route: 042
  10. CHLOROPYRAMINE HYDROCHLORIDE [Concomitant]
     Active Substance: CHLOROPYRAMINE HYDROCHLORIDE
     Indication: Product used for unknown indication
     Route: 030
  11. VITAMIN D3 [Concomitant]
     Active Substance: CHOLECALCIFEROL
     Indication: Autoimmune disorder
     Dosage: 3000 NE
     Route: 065
     Dates: start: 20201116
  12. ALGOPYRIN [Concomitant]
     Indication: Product used for unknown indication
     Route: 042

REACTIONS (2)
  - Lymphopenia [Recovering/Resolving]
  - Squamous cell carcinoma of the cervix [Unknown]

NARRATIVE: CASE EVENT DATE: 20220101
